FAERS Safety Report 12799375 (Version 1)
Quarter: 2016Q3

REPORT INFORMATION
  Report Type: Spontaneous
  Country: FR (occurrence: FR)
  Receive Date: 20160930
  Receipt Date: 20160930
  Transmission Date: 20161109
  Serious: Yes (Other)
  Sender: FDA-Public Use
  Company Number: FR-SA-2016SA174749

PATIENT
  Age: 77 Year
  Sex: Male

DRUGS (5)
  1. XGEVA [Suspect]
     Active Substance: DENOSUMAB
     Indication: HYPERCALCAEMIA
     Dosage: STRENGTH: 120 MG
     Route: 058
     Dates: start: 20140801, end: 20160401
  2. SOLUPRED [Suspect]
     Active Substance: PREDNISOLONE
     Route: 048
     Dates: end: 20150901
  3. ZYTIGA [Suspect]
     Active Substance: ABIRATERONE ACETATE
     Route: 048
     Dates: end: 20150901
  4. DOCETAXEL. [Suspect]
     Active Substance: DOCETAXEL
     Route: 042
     Dates: start: 20151101, end: 20160501
  5. ENANTONE LP [Suspect]
     Active Substance: LEUPROLIDE ACETATE
     Route: 030

REACTIONS (1)
  - Osteonecrosis of jaw [Not Recovered/Not Resolved]

NARRATIVE: CASE EVENT DATE: 20160701
